FAERS Safety Report 19481108 (Version 2)
Quarter: 2021Q3

REPORT INFORMATION
  Report Type: Report from Study
  Country: US (occurrence: US)
  Receive Date: 20210701
  Receipt Date: 20210715
  Transmission Date: 20211014
  Serious: Yes (Hospitalization)
  Sender: FDA-Public Use
  Company Number: US-BAXTER-2021BAX018187

PATIENT
  Age: 35 Year
  Sex: Male
  Weight: 76.7 kg

DRUGS (20)
  1. METHOTREXATE SODIUM. [Suspect]
     Active Substance: METHOTREXATE SODIUM
     Indication: B PRECURSOR TYPE ACUTE LEUKAEMIA
     Dosage: 1ST COURSE
     Route: 037
     Dates: start: 20200623
  2. VINCRISTINE SULFATE. [Suspect]
     Active Substance: VINCRISTINE SULFATE
     Dosage: 2?3 COURSES
     Route: 042
  3. RITUXIMAB. [Suspect]
     Active Substance: RITUXIMAB
     Dosage: CYCLIC, TOTAL DOSE AT THIS COURSE: 1380 MG, ON DAYS 1 AND 8,?4TH COURSE
     Route: 042
     Dates: start: 20210322, end: 20210329
  4. DOXIL [Suspect]
     Active Substance: DOXORUBICIN HYDROCHLORIDE
     Indication: B PRECURSOR TYPE ACUTE LEUKAEMIA
     Dosage: 1ST COURSE
     Route: 042
     Dates: start: 20200623
  5. INOTUZUMAB OZOGAMICIN [Suspect]
     Active Substance: INOTUZUMAB OZOGAMICIN
     Dosage: 0.5 MG/M2/DAY, CYCLIC, ON DAY 1, 8 AND 15 OF A 28?DAY CYCLE (MAXIMUM OF TWO CYCLES PENDING CONFIRMAT
     Route: 042
     Dates: start: 20200805, end: 20200916
  6. CYTARABINE. [Suspect]
     Active Substance: CYTARABINE
     Indication: B PRECURSOR TYPE ACUTE LEUKAEMIA
     Dosage: 1ST COURSE.
     Route: 065
     Dates: start: 20200623
  7. CYTARABINE. [Suspect]
     Active Substance: CYTARABINE
     Dosage: DAY 29?DAY 32, DAY 36?DAY 39, TOTAL DOSE THIS COURSE:1120 MG.?4TH COURSE
     Route: 065
     Dates: start: 20210426, end: 20210506
  8. DOXIL [Suspect]
     Active Substance: DOXORUBICIN HYDROCHLORIDE
     Dosage: 2?3 COURSES
     Route: 042
  9. DOXIL [Suspect]
     Active Substance: DOXORUBICIN HYDROCHLORIDE
     Dosage: DAY 1 ON 22MAR2021, DAY 8 ON 29MAR2021, DAY 15 ON 05APR2021, TOTAL DOSE THIS COURSE: 138.6MG?4TH COU
     Route: 042
     Dates: start: 20210322, end: 20210405
  10. CYTARABINE. [Suspect]
     Active Substance: CYTARABINE
     Dosage: 2?3 COURSES
     Route: 065
  11. VINCRISTINE SULFATE. [Suspect]
     Active Substance: VINCRISTINE SULFATE
     Dosage: DAY 1 ON 22MAR2021, DAY 8 ON 29MAR2021, DAY 15 ON 05APR2021, DAY 43 ON 12MAY2021, TOTAL DOSE THIS CO
     Route: 042
     Dates: start: 20210322, end: 20210512
  12. CYCLOPHOSPHAMIDE FOR INJECTION, USP [Suspect]
     Active Substance: CYCLOPHOSPHAMIDE
     Indication: B PRECURSOR TYPE ACUTE LEUKAEMIA
     Dosage: 1ST COURSE
     Route: 042
     Dates: start: 20200623
  13. CYCLOPHOSPHAMIDE FOR INJECTION, USP [Suspect]
     Active Substance: CYCLOPHOSPHAMIDE
     Dosage: 2?3 COURSES
     Route: 042
  14. METHOTREXATE SODIUM. [Suspect]
     Active Substance: METHOTREXATE SODIUM
     Dosage: CYCLIC, TOTAL DOSE AT THIS COURSE: 30 MG, ON DAYS 1, 29, AND 36?4TH COURSE
     Route: 037
     Dates: start: 20210322, end: 20210426
  15. VINCRISTINE SULFATE. [Suspect]
     Active Substance: VINCRISTINE SULFATE
     Indication: B PRECURSOR TYPE ACUTE LEUKAEMIA
     Dosage: 1ST COURSE
     Route: 042
     Dates: start: 20200623
  16. METHOTREXATE SODIUM. [Suspect]
     Active Substance: METHOTREXATE SODIUM
     Dosage: 2?3 COURSES
     Route: 037
  17. RITUXIMAB. [Suspect]
     Active Substance: RITUXIMAB
     Indication: B PRECURSOR TYPE ACUTE LEUKAEMIA
     Dosage: 1ST COURSE
     Route: 042
     Dates: start: 20200623
  18. CYCLOPHOSPHAMIDE FOR INJECTION, USP [Suspect]
     Active Substance: CYCLOPHOSPHAMIDE
     Dosage: CYCLIC, TOTAL DOSE AT THIS COURSE:1860 MG?4TH COURSE
     Route: 042
     Dates: start: 20210426, end: 20210426
  19. RITUXIMAB. [Suspect]
     Active Substance: RITUXIMAB
     Dosage: 2?3 COURSES
     Route: 042
  20. INOTUZUMAB OZOGAMICIN [Suspect]
     Active Substance: INOTUZUMAB OZOGAMICIN
     Indication: B PRECURSOR TYPE ACUTE LEUKAEMIA
     Dosage: 1ST COURSE
     Route: 042
     Dates: start: 20200623

REACTIONS (1)
  - Febrile neutropenia [Not Recovered/Not Resolved]

NARRATIVE: CASE EVENT DATE: 20210510
